FAERS Safety Report 8422550-3 (Version None)
Quarter: 2012Q2

REPORT INFORMATION
  Report Type: 
  Country: None (occurrence: None)
  Receive Date: 20120608
  Receipt Date: 20120530
  Transmission Date: 20120825
  Serious: Yes (Hospitalization)
  Sender: FDA-Public Use
  Company Number: US-VERTEX PHARMACEUTICALS INC.-AE-2012-006616

PATIENT
  Sex: Male

DRUGS (17)
  1. PEGASYS [Concomitant]
     Indication: HEPATITIS C
     Route: 058
     Dates: start: 20120220
  2. PENTASA [Concomitant]
  3. INCIVEK [Suspect]
     Indication: HEPATITIS C
     Route: 048
     Dates: start: 20120220, end: 20120517
  4. FUROSEMIDE [Concomitant]
  5. SPIRONOLACTONE [Concomitant]
  6. HYDROCODONE [Concomitant]
  7. ZOFRAN [Concomitant]
  8. LOMOTIL [Concomitant]
  9. PROCRIT [Concomitant]
  10. CITALOPRAM HYDROBROMIDE [Concomitant]
  11. HYDROXYZ [Concomitant]
  12. LEVOTHYROXINE SODIUM [Concomitant]
  13. NEXIUM [Concomitant]
  14. LISINOPRIL [Concomitant]
  15. RIBAVIRIN [Concomitant]
     Indication: HEPATITIS C
     Route: 048
     Dates: start: 20120220
  16. FIORICET [Concomitant]
  17. GABAPENTIN [Concomitant]

REACTIONS (8)
  - CROHN'S DISEASE [None]
  - FATIGUE [None]
  - PROCTALGIA [None]
  - ANAEMIA [None]
  - JAUNDICE [None]
  - HAEMORRHOIDS [None]
  - LIVER FUNCTION TEST ABNORMAL [None]
  - DEPRESSION [None]
